FAERS Safety Report 6684050-0 (Version None)
Quarter: 2010Q2

REPORT INFORMATION
  Report Type: 
  Country: None (occurrence: None)
  Receive Date: 20100416
  Receipt Date: 20100406
  Transmission Date: 20101027
  Serious: Yes (Other)
  Sender: FDA-Public Use
  Company Number: CA-PFIZER INC-2010036588

PATIENT
  Age: 53 Year
  Sex: Male

DRUGS (4)
  1. LIPITOR [Suspect]
     Dosage: 20 MG, UNK
  2. RISPERIDONE [Concomitant]
     Dosage: UNK
  3. RAMIPRIL [Concomitant]
     Dosage: UNK
  4. AVANDAMET [Concomitant]
     Dosage: UNK

REACTIONS (1)
  - CHEST PAIN [None]
